FAERS Safety Report 16731324 (Version 4)
Quarter: 2019Q4

REPORT INFORMATION
  Report Type: Report from Study
  Country: US (occurrence: US)
  Receive Date: 20190822
  Receipt Date: 20191029
  Transmission Date: 20200122
  Serious: Yes (Hospitalization, Other)
  Sender: FDA-Public Use
  Company Number: US-JNJFOC-20190802545

PATIENT
  Age: 77 Year
  Sex: Female

DRUGS (15)
  1. ALLOPURINOL. [Concomitant]
     Active Substance: ALLOPURINOL
  2. AMLODIPINE BESILATE [Suspect]
     Active Substance: AMLODIPINE BESYLATE
     Indication: PRODUCT USED FOR UNKNOWN INDICATION
     Route: 065
  3. PREDNISONE. [Suspect]
     Active Substance: PREDNISONE
     Indication: HYPERTENSION
     Route: 065
  4. CRANBERRY. [Concomitant]
     Active Substance: CRANBERRY
  5. POTASSIUM [Concomitant]
     Active Substance: POTASSIUM
  6. ERYTHROMYCIN. [Concomitant]
     Active Substance: ERYTHROMYCIN
  7. MULTIVITAMIN FOR WOMEN [Concomitant]
     Active Substance: MINERALS\VITAMINS
  8. COZAAR [Concomitant]
     Active Substance: LOSARTAN POTASSIUM
  9. CARVEDILOL. [Concomitant]
     Active Substance: CARVEDILOL
  10. COENZYME Q10 [Concomitant]
     Active Substance: UBIDECARENONE
  11. ANTIVERT                           /00007101/ [Concomitant]
     Active Substance: MECLIZINE MONOHYDROCHLORIDE\NIACIN
  12. ELIQUIS [Concomitant]
     Active Substance: APIXABAN
  13. IMBRUVICA [Suspect]
     Active Substance: IBRUTINIB
     Indication: B-CELL SMALL LYMPHOCYTIC LYMPHOMA
     Dosage: 420 MG, QD
     Route: 048
     Dates: start: 20190725, end: 201909
  14. BENADRYL [Concomitant]
     Active Substance: DIPHENHYDRAMINE HYDROCHLORIDE
  15. CURCUMA LONGA [Concomitant]
     Active Substance: HERBALS\TURMERIC

REACTIONS (9)
  - Bronchitis [Unknown]
  - Vision blurred [Unknown]
  - Arthralgia [Unknown]
  - Oedema peripheral [Recovering/Resolving]
  - Joint swelling [Not Recovered/Not Resolved]
  - Diarrhoea [Unknown]
  - Increased tendency to bruise [Unknown]
  - Drug hypersensitivity [Not Recovered/Not Resolved]
  - Blood pressure fluctuation [Unknown]

NARRATIVE: CASE EVENT DATE: 201907
